FAERS Safety Report 26112471 (Version 1)
Quarter: 2025Q4

REPORT INFORMATION
  Report Type: Report from Study
  Country: US (occurrence: US)
  Receive Date: 20251202
  Receipt Date: 20251202
  Transmission Date: 20260117
  Serious: Yes (Other)
  Sender: MYLAN
  Company Number: US-MYLANLABS-2024M1056469

PATIENT
  Age: 64 Year
  Sex: Female
  Weight: 77.1 kg

DRUGS (3)
  1. GLATIRAMER ACETATE [Suspect]
     Active Substance: GLATIRAMER ACETATE
     Indication: Relapsing-remitting multiple sclerosis
     Dosage: 40 MILLIGRAM, 3XW (THREE TIMES PER WEEK)
  2. GLATIRAMER ACETATE [Suspect]
     Active Substance: GLATIRAMER ACETATE
     Indication: Multiple sclerosis
  3. INSULIN NOS [Concomitant]
     Active Substance: INSULIN NOS
     Dosage: UNK

REACTIONS (12)
  - Multiple sclerosis relapse [Unknown]
  - Blindness unilateral [Unknown]
  - Trigger points [Unknown]
  - Injury [Unknown]
  - Nausea [Unknown]
  - Vomiting [Unknown]
  - Rash [Recovered/Resolved]
  - Injection site bruising [Unknown]
  - Injection site pain [Recovered/Resolved]
  - Injection site discolouration [Unknown]
  - Inappropriate schedule of product administration [Unknown]
  - Product dose omission in error [Unknown]

NARRATIVE: CASE EVENT DATE: 20240601
